FAERS Safety Report 4715611-3 (Version None)
Quarter: 2005Q3

REPORT INFORMATION
  Report Type: 
  Country: None (occurrence: None)
  Receive Date: 20050713
  Receipt Date: 20050630
  Transmission Date: 20060218
  Serious: Yes (Other)
  Sender: FDA-Public Use
  Company Number: FI-2005-012316

PATIENT
  Age: 52 Year
  Sex: Female
  Weight: 64 kg

DRUGS (3)
  1. MIRENA (LEVONORGESTRE) IUS [Suspect]
     Indication: CONTRACEPTION
     Dosage: 20 UG/DAY, CONT, INTRA-UTERINE
     Route: 015
     Dates: start: 20030609, end: 20050627
  2. CLIMARA [Suspect]
     Indication: HORMONE REPLACEMENT THERAPY
     Dosage: 50 UG, CONT, TRASDERMAL
     Route: 062
     Dates: start: 20040920, end: 20050323
  3. PROGYNOVAL(ESTRADIOL VALERATE) N/A [Suspect]
     Indication: HORMONE REPLACEMENT THERAPY
     Dosage: 2 MG, ORAL
     Route: 048
     Dates: start: 20050320, end: 20050619

REACTIONS (1)
  - BREAST CANCER FEMALE [None]
